FAERS Safety Report 14264807 (Version 4)
Quarter: 2018Q1

REPORT INFORMATION
  Report Type: Report from Study
  Country: US (occurrence: US)
  Receive Date: 20171208
  Receipt Date: 20180220
  Transmission Date: 20180508
  Serious: Yes (Hospitalization, Other)
  Sender: FDA-Public Use
  Company Number: US-AMGEN-USACT2017179657

PATIENT
  Age: 11 Year
  Sex: Female
  Weight: 62.2 kg

DRUGS (14)
  1. METHOTREXATE. [Suspect]
     Active Substance: METHOTREXATE
     Indication: B PRECURSOR TYPE ACUTE LEUKAEMIA
     Dosage: 1730 MG, UNK
     Route: 037
     Dates: start: 20170217
  2. HYDROCORTISONE. [Suspect]
     Active Substance: HYDROCORTISONE
     Indication: B PRECURSOR TYPE ACUTE LEUKAEMIA
     Dosage: 411 MG, UNK
     Route: 048
     Dates: start: 20170210
  3. BLINATUMOMAB [Suspect]
     Active Substance: BLINATUMOMAB
     Dosage: APPROXIMATELY 72.9 MUG, CONTINUING
     Route: 042
     Dates: start: 201709, end: 20170925
  4. ERWINIA [Suspect]
     Active Substance: ASPARAGINASE ERWINIA CHRYSANTHEMI
     Indication: B PRECURSOR TYPE ACUTE LEUKAEMIA
     Dosage: 1255 MG, UNK
     Route: 042
     Dates: start: 20170410
  5. MERCAPTOPURINE. [Suspect]
     Active Substance: MERCAPTOPURINE
     Indication: B PRECURSOR TYPE ACUTE LEUKAEMIA
     Dosage: 4344 MG, UNK
     Route: 042
     Dates: start: 20170410
  6. MITOXANTRONE HYDROCHLORIDE. [Suspect]
     Active Substance: MITOXANTRONE HYDROCHLORIDE
     Indication: B PRECURSOR TYPE ACUTE LEUKAEMIA
     Dosage: 12 MG, UNK
     Route: 042
     Dates: start: 20170210
  7. BLINATUMOMAB [Suspect]
     Active Substance: BLINATUMOMAB
     Indication: B PRECURSOR TYPE ACUTE LEUKAEMIA
     Dosage: 728.1 MUG, CONTINUING
     Route: 042
     Dates: start: 20170522
  8. CYCLOPHOSPHAMIDE. [Suspect]
     Active Substance: CYCLOPHOSPHAMIDE
     Indication: B PRECURSOR TYPE ACUTE LEUKAEMIA
     Dosage: 460 MG, UNK
     Route: 048
     Dates: start: 20170808
  9. ETOPOSIDE. [Suspect]
     Active Substance: ETOPOSIDE
     Indication: B PRECURSOR TYPE ACUTE LEUKAEMIA
     Dosage: 1255 MG, UNK
     Route: 042
     Dates: start: 20170410
  10. BLINATUMOMAB [Suspect]
     Active Substance: BLINATUMOMAB
     Dosage: 24.3 MUG, CONTINUING
     Route: 042
     Dates: start: 20170905
  11. CYTARABINE. [Suspect]
     Active Substance: CYTARABINE
     Indication: B PRECURSOR TYPE ACUTE LEUKAEMIA
     Dosage: 30.8 MG, UNK
     Route: 042
     Dates: start: 20170210
  12. DEXAMETHASONE. [Suspect]
     Active Substance: DEXAMETHASONE
     Indication: B PRECURSOR TYPE ACUTE LEUKAEMIA
     Dosage: 2550 MG, UNK
     Route: 048
     Dates: start: 20170626
  13. THIOGUANINE [Suspect]
     Active Substance: THIOGUANINE
     Indication: B PRECURSOR TYPE ACUTE LEUKAEMIA
     Dosage: 460 MG, UNK
     Route: 048
     Dates: start: 20170808
  14. VINCRISTINE SULFATE. [Suspect]
     Active Substance: VINCRISTINE SULFATE
     Indication: B PRECURSOR TYPE ACUTE LEUKAEMIA
     Dosage: 460500 UNIT, UNK
     Route: 030
     Dates: start: 20170213

REACTIONS (4)
  - Optic nerve disorder [Recovering/Resolving]
  - Papilloedema [Recovered/Resolved with Sequelae]
  - Photophobia [Recovered/Resolved with Sequelae]
  - Periorbital cellulitis [Recovered/Resolved with Sequelae]

NARRATIVE: CASE EVENT DATE: 20170908
